FAERS Safety Report 21717559 (Version 2)
Quarter: 2024Q1

REPORT INFORMATION
  Report Type: Spontaneous
  Country: US (occurrence: US)
  Receive Date: 20221212
  Receipt Date: 20240313
  Transmission Date: 20240410
  Serious: No
  Sender: FDA-Public Use
  Company Number: US-GBT-015150

PATIENT
  Age: 19 Year
  Sex: Male

DRUGS (3)
  1. OXBRYTA [Interacting]
     Active Substance: VOXELOTOR
     Indication: Sickle cell disease
     Dosage: 1500 MG, 1X/DAY
     Route: 048
  2. HYDROXYUREA [Interacting]
     Active Substance: HYDROXYUREA
     Dosage: UNK
  3. HYDROXYUREA [Interacting]
     Active Substance: HYDROXYUREA
     Dosage: UNK (INCREASED THE DOSE OF HYDROXYUREA)
     Dates: start: 202207

REACTIONS (3)
  - Nausea [Recovered/Resolved]
  - Vomiting [Recovered/Resolved]
  - Drug interaction [Unknown]

NARRATIVE: CASE EVENT DATE: 20220701
